FAERS Safety Report 8650653 (Version 6)
Quarter: 2013Q1

REPORT INFORMATION
  Report Type: Spontaneous
  Country: US (occurrence: US)
  Receive Date: 20120705
  Receipt Date: 20130212
  Transmission Date: 20140127
  Serious: Yes (Other)
  Sender: FDA-Public Use
  Company Number: US-JNJFOC-20120516345

PATIENT
  Sex: Female

DRUGS (4)
  1. TOPAMAX [Suspect]
     Indication: EPILEPSY
     Route: 048
     Dates: start: 20060714, end: 20060814
  2. NEURONTIN [Suspect]
     Indication: CONVULSION
     Route: 065
  3. PHENOBARBITAL [Suspect]
     Indication: CONVULSION
     Route: 065
  4. VITAMIN [Concomitant]
     Indication: PRODUCT USED FOR UNKNOWN INDICATION
     Route: 065

REACTIONS (5)
  - Exposure during pregnancy [Recovered/Resolved]
  - Premature delivery [Recovered/Resolved]
  - Subchorionic haemorrhage [Unknown]
  - Emotional disorder [Unknown]
  - Polyhydramnios [Recovered/Resolved]
